FAERS Safety Report 25125003 (Version 1)
Quarter: 2025Q1

REPORT INFORMATION
  Report Type: Spontaneous
  Country: US (occurrence: US)
  Receive Date: 20250326
  Receipt Date: 20250326
  Transmission Date: 20250408
  Serious: No
  Sender: INSUD PHARMA
  Company Number: US-INSUD PHARMA-2503US02108

PATIENT

DRUGS (1)
  1. SLYND [Suspect]
     Active Substance: DROSPIRENONE
     Indication: Contraception
     Route: 048
     Dates: start: 202412

REACTIONS (1)
  - Amenorrhoea [Not Recovered/Not Resolved]
